FAERS Safety Report 4334562-X (Version None)
Quarter: 2004Q2

REPORT INFORMATION
  Report Type: 
  Country: None (occurrence: None)
  Receive Date: 20040407
  Receipt Date: 20040329
  Transmission Date: 20050107
  Serious: Yes (Other)
  Sender: FDA-Public Use
  Company Number: US-ROCHE-363357

PATIENT
  Age: 22 Year
  Sex: Male

DRUGS (1)
  1. ACCUTANE [Suspect]
     Indication: DRUG USE FOR UNKNOWN INDICATION
     Route: 048

REACTIONS (5)
  - CHAPPED LIPS [None]
  - FEELING GUILTY [None]
  - LIP DRY [None]
  - MENTAL DISORDER [None]
  - PARANOIA [None]
